FAERS Safety Report 10330367 (Version 2)
Quarter: 2014Q3

REPORT INFORMATION
  Report Type: Spontaneous
  Country: FR (occurrence: FR)
  Receive Date: 20140722
  Receipt Date: 20140728
  Transmission Date: 20150326
  Serious: Yes (Other)
  Sender: FDA-Public Use
  Company Number: FR-ROCHE-1436720

PATIENT
  Age: 69 Year
  Sex: Male
  Weight: 97 kg

DRUGS (14)
  1. CELLCEPT [Suspect]
     Active Substance: MYCOPHENOLATE MOFETIL\MYCOPHENOLATE MOFETIL HYDROCHLORIDE
     Dosage: DOSE REDUCED
     Route: 065
  2. MECIR [Suspect]
     Active Substance: TAMSULOSIN HYDROCHLORIDE
     Indication: CYTOMEGALOVIRUS INFECTION
     Route: 065
     Dates: start: 20140505, end: 20140603
  3. ROVALCYTE [Suspect]
     Active Substance: VALGANCICLOVIR HYDROCHLORIDE
     Route: 065
     Dates: start: 20140207, end: 20140213
  4. TIENAM IV [Concomitant]
     Active Substance: CILASTATIN SODIUM\IMIPENEM
     Dosage: FOR: 3 WEEKKS
     Route: 065
  5. CALCIPARINE [Concomitant]
     Active Substance: HEPARIN CALCIUM
     Route: 065
     Dates: end: 20140508
  6. CELLCEPT [Suspect]
     Active Substance: MYCOPHENOLATE MOFETIL\MYCOPHENOLATE MOFETIL HYDROCHLORIDE
     Dosage: DOSE INCREASED
     Route: 065
     Dates: start: 20140502
  7. ROVALCYTE [Suspect]
     Active Substance: VALGANCICLOVIR HYDROCHLORIDE
     Indication: CYTOMEGALOVIRUS INFECTION
     Route: 065
     Dates: start: 20140109, end: 20140123
  8. OFLOXACIN. [Suspect]
     Active Substance: OFLOXACIN
     Dosage: DOSE INCREASED
     Route: 065
     Dates: start: 20140505, end: 20140516
  9. CELLCEPT [Suspect]
     Active Substance: MYCOPHENOLATE MOFETIL\MYCOPHENOLATE MOFETIL HYDROCHLORIDE
     Indication: CYTOMEGALOVIRUS INFECTION
     Route: 065
  10. VANCOMYCINE [Suspect]
     Active Substance: VANCOMYCIN
     Indication: CYTOMEGALOVIRUS INFECTION
     Route: 048
     Dates: start: 20140505, end: 20140609
  11. CUBICIN [Suspect]
     Active Substance: DAPTOMYCIN
     Route: 065
     Dates: start: 20140502, end: 20140517
  12. ROVALCYTE [Suspect]
     Active Substance: VALGANCICLOVIR HYDROCHLORIDE
     Route: 065
     Dates: start: 20140503, end: 20140512
  13. CUBICIN [Suspect]
     Active Substance: DAPTOMYCIN
     Indication: CYTOMEGALOVIRUS INFECTION
     Route: 065
     Dates: start: 20140425
  14. OFLOXACIN. [Suspect]
     Active Substance: OFLOXACIN
     Indication: CYTOMEGALOVIRUS INFECTION
     Route: 065
     Dates: start: 20140425

REACTIONS (3)
  - Thrombocytopenia [Recovered/Resolved]
  - Leukopenia [Recovered/Resolved]
  - Febrile neutropenia [Recovered/Resolved]

NARRATIVE: CASE EVENT DATE: 20140509
